FAERS Safety Report 23827819 (Version 1)
Quarter: 2024Q2

REPORT INFORMATION
  Report Type: Spontaneous
  Country: MZ (occurrence: MZ)
  Receive Date: 20240507
  Receipt Date: 20240507
  Transmission Date: 20240715
  Serious: Yes (Other)
  Sender: FDA-Public Use
  Company Number: MZ-GLAXOSMITHKLINE-MZ2024GSK056496

PATIENT

DRUGS (3)
  1. LAMIVUDINE [Suspect]
     Active Substance: LAMIVUDINE
     Indication: HIV infection
     Dosage: UNK
  2. DOLUTEGRAVIR [Suspect]
     Active Substance: DOLUTEGRAVIR
     Indication: HIV infection
     Dosage: UNK
  3. TENOFOVIR DISOPROXIL FUMARATE [Suspect]
     Active Substance: TENOFOVIR DISOPROXIL FUMARATE
     Indication: HIV infection
     Dosage: UNK

REACTIONS (14)
  - Kaposi^s sarcoma [Recovering/Resolving]
  - Immune reconstitution inflammatory syndrome [Recovering/Resolving]
  - Diarrhoea [Recovering/Resolving]
  - Haematochezia [Recovering/Resolving]
  - Vomiting [Recovering/Resolving]
  - Generalised oedema [Recovering/Resolving]
  - Fatigue [Recovering/Resolving]
  - Mucosal discolouration [Recovering/Resolving]
  - Lymphadenopathy [Recovering/Resolving]
  - Normocytic anaemia [Recovering/Resolving]
  - Skin lesion [Recovering/Resolving]
  - Chronic gastritis [Recovering/Resolving]
  - Ulcer [Recovering/Resolving]
  - Condition aggravated [Recovering/Resolving]
